FAERS Safety Report 5031773-5 (Version None)
Quarter: 2006Q2

REPORT INFORMATION
  Report Type: 
  Country: None (occurrence: None)
  Receive Date: 20060619
  Receipt Date: 20060615
  Transmission Date: 20061013
  Serious: Yes (Life-Threatening)
  Sender: FDA-Public Use
  Company Number: 2006-143898-NL

PATIENT
  Age: 76 Year
  Sex: Female

DRUGS (7)
  1. ROCURONIUM [Suspect]
  2. CEFALOSPORINES [Suspect]
  3. LATEX [Suspect]
  4. SUFENTANIL CITRATE [Suspect]
  5. DIAZEPAM [Suspect]
  6. CHLORHEXIDINE [Suspect]
  7. ADHESIVE BANDAGES [Suspect]

REACTIONS (2)
  - ANAPHYLACTIC SHOCK [None]
  - CARDIAC ARREST [None]
